FAERS Safety Report 16787500 (Version 4)
Quarter: 2020Q3

REPORT INFORMATION
  Report Type: Spontaneous
  Country: US (occurrence: US)
  Receive Date: 20190909
  Receipt Date: 20200728
  Transmission Date: 20201102
  Serious: Yes (Hospitalization)
  Sender: FDA-Public Use
  Company Number: US-ACTELION-A-NJ2019-195055

PATIENT
  Age: 70 Year
  Sex: Female
  Weight: 92.97 kg

DRUGS (2)
  1. OPSUMIT [Suspect]
     Active Substance: MACITENTAN
     Indication: PULMONARY ARTERIAL HYPERTENSION
     Dosage: 10 MG, QD
     Route: 048
  2. SILDENAFIL CITRATE. [Concomitant]
     Active Substance: SILDENAFIL CITRATE

REACTIONS (4)
  - Nasopharyngitis [Unknown]
  - Hiatus hernia [Unknown]
  - Cough [Unknown]
  - Hernia hiatus repair [Unknown]

NARRATIVE: CASE EVENT DATE: 201908
